FAERS Safety Report 8972440 (Version 1)
Quarter: 2012Q4

REPORT INFORMATION
  Report Type: Spontaneous
  Country: US (occurrence: None)
  Receive Date: 20121217
  Receipt Date: 20121217
  Transmission Date: 20130627
  Serious: No
  Sender: FDA-Public Use
  Company Number: None

PATIENT
  Age: 63 Year
  Sex: Male
  Weight: 89.36 kg

DRUGS (2)
  1. ATENOLOL [Suspect]
     Indication: BLOOD PRESSURE HIGH
     Route: 048
  2. TENORMIN [Suspect]
     Indication: BLOOD PRESSURE HIGH
     Route: 048

REACTIONS (5)
  - Chest pain [None]
  - Sexual dysfunction [None]
  - Extrasystoles [None]
  - Fatigue [None]
  - Migraine [None]
